FAERS Safety Report 6998823-8 (Version None)
Quarter: 2010Q3

REPORT INFORMATION
  Report Type: 
  Country: None (occurrence: None)
  Receive Date: 20100920
  Receipt Date: 20070613
  Transmission Date: 20110219
  Serious: Yes (Other)
  Sender: FDA-Public Use
  Company Number: US-ASTRAZENECA-2006UW23181

PATIENT
  Age: 10713 Day
  Sex: Male
  Weight: 79.4 kg

DRUGS (7)
  1. SEROQUEL [Suspect]
     Indication: DEPRESSION
     Route: 048
     Dates: start: 20021209
  2. SEROQUEL [Suspect]
     Route: 048
  3. RISPERDAL [Concomitant]
  4. LOTENSIN [Concomitant]
     Indication: BLOOD PRESSURE INCREASED
     Dates: start: 20021218
  5. PAXIL [Concomitant]
     Dates: start: 20021209
  6. COGENTIN [Concomitant]
     Dates: start: 20021209
  7. PROLIXIN [Concomitant]
     Dates: start: 20021209

REACTIONS (2)
  - DIABETES MELLITUS [None]
  - TYPE 2 DIABETES MELLITUS [None]
